FAERS Safety Report 21338760 (Version 5)
Quarter: 2023Q2

REPORT INFORMATION
  Report Type: Report from Study
  Country: US (occurrence: US)
  Receive Date: 20220915
  Receipt Date: 20230627
  Transmission Date: 20230722
  Serious: Yes (Other)
  Sender: FDA-Public Use
  Company Number: US-NOVARTISTESTPH-NVSC2022US208770

PATIENT
  Age: 61 Year
  Sex: Female

DRUGS (3)
  1. COSENTYX [Suspect]
     Active Substance: SECUKINUMAB
     Indication: Psoriatic arthropathy
     Dosage: 150 MG, QMO
     Route: 058
     Dates: start: 20220803
  2. COSENTYX [Suspect]
     Active Substance: SECUKINUMAB
     Dosage: 300 MG (FOR FEW MONTHS)
     Route: 058
  3. COSENTYX [Suspect]
     Active Substance: SECUKINUMAB
     Dosage: UNK
     Route: 058
     Dates: start: 20220929

REACTIONS (8)
  - Psoriatic arthropathy [Recovered/Resolved]
  - Joint swelling [Unknown]
  - Arthralgia [Unknown]
  - Sinus congestion [Unknown]
  - Bursitis [Recovered/Resolved]
  - Arthralgia [Recovered/Resolved]
  - Urticaria [Recovered/Resolved]
  - Skin reaction [Unknown]

NARRATIVE: CASE EVENT DATE: 20220831
